FAERS Safety Report 12579859 (Version 1)
Quarter: 2016Q3

REPORT INFORMATION
  Report Type: Report from Study
  Country: BR (occurrence: BR)
  Receive Date: 20160721
  Receipt Date: 20160721
  Transmission Date: 20161109
  Serious: Yes (Death, Hospitalization)
  Sender: FDA-Public Use
  Company Number: PHHY2016BR099859

PATIENT
  Sex: Male
  Weight: 85 kg

DRUGS (1)
  1. EXELON [Suspect]
     Active Substance: RIVASTIGMINE TARTRATE
     Indication: DEMENTIA ALZHEIMER^S TYPE
     Dosage: QD
     Route: 048

REACTIONS (3)
  - Asthenia [Unknown]
  - Lung disorder [Fatal]
  - Pneumonia [Fatal]
